FAERS Safety Report 5069300-9 (Version None)
Quarter: 2006Q3

REPORT INFORMATION
  Report Type: 
  Country: None (occurrence: None)
  Receive Date: 20060731
  Receipt Date: 20060717
  Transmission Date: 20061208
  Serious: Yes (Hospitalization)
  Sender: FDA-Public Use
  Company Number: 2006090691

PATIENT
  Age: 66 Year
  Sex: Male
  Weight: 85.7298 kg

DRUGS (1)
  1. CELEBREX [Suspect]
     Indication: ARTHRITIS
     Dosage: 400 MG (200 MG, 2 IN 1 D)
     Dates: start: 20010101, end: 20040101

REACTIONS (4)
  - CONVULSION [None]
  - DIZZINESS [None]
  - LOSS OF CONSCIOUSNESS [None]
  - TREMOR [None]
